FAERS Safety Report 20465435 (Version 2)
Quarter: 2022Q1

REPORT INFORMATION
  Report Type: Report from Study
  Country: US (occurrence: US)
  Receive Date: 20220212
  Receipt Date: 20220316
  Transmission Date: 20220424
  Serious: No
  Sender: FDA-Public Use
  Company Number: US-SA-SAC20220204000914

PATIENT
  Age: 73 Year
  Sex: Female
  Weight: 83.91 kg

DRUGS (2)
  1. DUPILUMAB [Suspect]
     Active Substance: DUPILUMAB
     Indication: Dermatitis atopic
     Dosage: 300 MG, QOW
     Route: 058
     Dates: start: 202112
  2. DUPILUMAB [Suspect]
     Active Substance: DUPILUMAB
     Dosage: 300 MG, QOW
     Route: 058
     Dates: start: 20220222

REACTIONS (9)
  - Burning sensation [Unknown]
  - Chest pain [Unknown]
  - Dyspepsia [Unknown]
  - Skin disorder [Unknown]
  - Sleep disorder [Unknown]
  - Condition aggravated [Unknown]
  - Scratch [Unknown]
  - Stress [Unknown]
  - Weight increased [Unknown]
